FAERS Safety Report 6795018-8 (Version None)
Quarter: 2010Q2

REPORT INFORMATION
  Report Type: 
  Country: None (occurrence: None)
  Receive Date: 20100625
  Receipt Date: 20100614
  Transmission Date: 20101027
  Serious: Yes (Other)
  Sender: FDA-Public Use
  Company Number: PHHY2010BR39200

PATIENT
  Sex: Female

DRUGS (2)
  1. ACLASTA [Suspect]
     Dosage: 5 MG/ 100 ML
     Dates: start: 20090101
  2. OSCAL 500-D [Concomitant]
     Dosage: 500 MG

REACTIONS (3)
  - FEELING ABNORMAL [None]
  - OSTEOPOROSIS [None]
  - PAIN IN EXTREMITY [None]
